FAERS Safety Report 23098573 (Version 2)
Quarter: 2023Q4

REPORT INFORMATION
  Report Type: Spontaneous
  Country: US (occurrence: US)
  Receive Date: 20231023
  Receipt Date: 20231128
  Transmission Date: 20240109
  Serious: Yes (Other)
  Sender: FDA-Public Use
  Company Number: US-BIOGEN-2023BI01232225

PATIENT
  Age: 54 Year
  Sex: Male

DRUGS (4)
  1. TYSABRI [Suspect]
     Active Substance: NATALIZUMAB
     Indication: Multiple sclerosis
     Route: 050
     Dates: start: 20210817
  2. TYSABRI [Suspect]
     Active Substance: NATALIZUMAB
     Route: 050
  3. BACLOFEN [Concomitant]
     Active Substance: BACLOFEN
     Indication: Product used for unknown indication
     Route: 050
  4. ONDANSETRON [Concomitant]
     Active Substance: ONDANSETRON
     Indication: Product used for unknown indication
     Route: 050

REACTIONS (3)
  - Ophthalmic herpes zoster [Unknown]
  - Deep vein thrombosis [Unknown]
  - Post herpetic neuralgia [Unknown]

NARRATIVE: CASE EVENT DATE: 20230725
